FAERS Safety Report 15769934 (Version 2)
Quarter: 2019Q1

REPORT INFORMATION
  Report Type: Spontaneous
  Country: FR (occurrence: FR)
  Receive Date: 20181228
  Receipt Date: 20190128
  Transmission Date: 20190417
  Serious: Yes (Life-Threatening)
  Sender: FDA-Public Use
  Company Number: FR-SUN PHARMACEUTICAL INDUSTRIES LTD-2018RR-194917

PATIENT

DRUGS (6)
  1. CARBOPLATIN. [Suspect]
     Active Substance: CARBOPLATIN
     Indication: BREAST CANCER METASTATIC
     Dosage: 1/CURE
     Route: 065
     Dates: start: 20160705, end: 20170131
  2. DOXORUBICINE [Suspect]
     Active Substance: DOXORUBICIN
     Indication: BREAST CANCER
     Dosage: UNK
     Route: 065
     Dates: start: 1996, end: 1996
  3. PACLITAXEL. [Suspect]
     Active Substance: PACLITAXEL
     Indication: BREAST CANCER METASTATIC
     Dosage: 1/CURE
     Route: 065
     Dates: start: 20160705, end: 20161121
  4. CYCLOPHOSPHAMIDE. [Suspect]
     Active Substance: CYCLOPHOSPHAMIDE
     Indication: PRODUCT USED FOR UNKNOWN INDICATION
     Dosage: UNK
     Route: 065
     Dates: start: 1996, end: 1996
  5. FLUOROURACILE [Suspect]
     Active Substance: FLUOROURACIL
     Indication: BREAST CANCER
     Dosage: UNK
     Route: 065
     Dates: start: 1996, end: 1996
  6. XELODA [Suspect]
     Active Substance: CAPECITABINE
     Indication: BREAST CANCER METASTATIC
     Dosage: 300 MILLIGRAM, QD
     Route: 048
     Dates: start: 201703, end: 20181018

REACTIONS (1)
  - Acute myeloid leukaemia [Not Recovered/Not Resolved]

NARRATIVE: CASE EVENT DATE: 201810
